FAERS Safety Report 20278543 (Version 2)
Quarter: 2022Q1

REPORT INFORMATION
  Report Type: Spontaneous
  Country: US (occurrence: US)
  Receive Date: 20220103
  Receipt Date: 20220201
  Transmission Date: 20220424
  Serious: Yes (Hospitalization, Disabling, Other)
  Sender: FDA-Public Use
  Company Number: US-BoehringerIngelheim-2022-BI-146298

PATIENT
  Sex: Male

DRUGS (1)
  1. STIOLTO RESPIMAT [Suspect]
     Active Substance: OLODATEROL HYDROCHLORIDE\TIOTROPIUM BROMIDE MONOHYDRATE
     Indication: Product used for unknown indication
     Route: 055
     Dates: start: 20200806

REACTIONS (4)
  - COVID-19 [Unknown]
  - Seizure [Unknown]
  - Transfusion [Unknown]
  - Complication associated with device [Unknown]
